FAERS Safety Report 22202212 (Version 1)
Quarter: 2023Q2

REPORT INFORMATION
  Report Type: Spontaneous
  Country: US (occurrence: None)
  Receive Date: 20230411
  Receipt Date: 20230411
  Transmission Date: 20230722
  Serious: No
  Sender: FDA-Public Use
  Company Number: None

PATIENT
  Age: 67 Year
  Weight: 108 kg

DRUGS (2)
  1. E MEI SHAN MEDICATED PLASTER [Suspect]
     Active Substance: CAMPHOR (SYNTHETIC)\MENTHOL\METHYL SALICYLATE
     Indication: Arthralgia
     Dosage: OTHER QUANTITY : 5 PATCH(ES);?FREQUENCY : EVERY 12 HOURS;?
     Route: 062
     Dates: start: 20230123, end: 20230315
  2. E MEI SHAN MEDICATED PLASTER [Suspect]
     Active Substance: CAMPHOR (SYNTHETIC)\MENTHOL\METHYL SALICYLATE
     Indication: Arthralgia

REACTIONS (2)
  - Application site rash [None]
  - Application site pruritus [None]

NARRATIVE: CASE EVENT DATE: 20230322
